FAERS Safety Report 8613279-7 (Version None)
Quarter: 2012Q3

REPORT INFORMATION
  Report Type: 
  Country: None (occurrence: None)
  Receive Date: 20120822
  Receipt Date: 20120803
  Transmission Date: 20120928
  Serious: Yes (Death)
  Sender: FDA-Public Use
  Company Number: ES-009507513-1208USA003736

PATIENT

DRUGS (2)
  1. TRABECTEDIN [Suspect]
     Indication: SOFT TISSUE NEOPLASM
     Dosage: 1500 MICROGRAM PER SQ METER, Q3W
     Route: 042
  2. DEXAMETHASONE [Suspect]
     Indication: SOFT TISSUE NEOPLASM
     Dosage: UNK
     Route: 048

REACTIONS (1)
  - DEATH [None]
